FAERS Safety Report 11408720 (Version 1)
Quarter: 2015Q3

REPORT INFORMATION
  Report Type: Spontaneous
  Country: PL (occurrence: PL)
  Receive Date: 20150823
  Receipt Date: 20150823
  Transmission Date: 20151125
  Serious: Yes (Other)
  Sender: FDA-Public Use
  Company Number: PL-TEVA-588043ISR

PATIENT
  Age: 16 Year
  Sex: Male

DRUGS (4)
  1. METHOTREXATE [Suspect]
     Active Substance: METHOTREXATE
  2. VITAMIN D3 [Concomitant]
     Active Substance: CHOLECALCIFEROL
  3. CALICIUM [Concomitant]
  4. CICLOSPORIN [Suspect]
     Active Substance: CYCLOSPORINE
     Dosage: 3 MG/KG/24 H

REACTIONS (7)
  - Hepatomegaly [Unknown]
  - Amyloidosis [Unknown]
  - Respiratory failure [Unknown]
  - Pneumonia [Unknown]
  - Spinal compression fracture [Unknown]
  - Proteinuria [Unknown]
  - Splenomegaly [Unknown]
